FAERS Safety Report 14906306 (Version 1)
Quarter: 2018Q2

REPORT INFORMATION
  Report Type: Spontaneous
  Country: US (occurrence: US)
  Receive Date: 20180517
  Receipt Date: 20180517
  Transmission Date: 20180711
  Serious: No
  Sender: FDA-Public Use
  Company Number: US-SA-2018SA087156

PATIENT
  Sex: Male

DRUGS (2)
  1. LANTUS [Suspect]
     Active Substance: INSULIN GLARGINE
     Indication: TYPE 2 DIABETES MELLITUS
     Route: 051
  2. LANTUS [Suspect]
     Active Substance: INSULIN GLARGINE
     Indication: TYPE 2 DIABETES MELLITUS
     Dosage: DOSE:  RAISES HIS LANTUS 3 UNITS EVERY THIRD DAY IF THE FINGER STICK IS ?ABOVE 100
     Route: 051

REACTIONS (4)
  - Blood glucose increased [Unknown]
  - Treatment noncompliance [Unknown]
  - Drug dose omission [Unknown]
  - Ill-defined disorder [Unknown]
